FAERS Safety Report 7065119-8 (Version None)
Quarter: 2010Q4

REPORT INFORMATION
  Report Type: 
  Country: None (occurrence: None)
  Receive Date: 20101022
  Receipt Date: 20101022
  Transmission Date: 20110411
  Serious: Yes (Other)
  Sender: FDA-Public Use
  Company Number: None

PATIENT
  Age: 18 Year
  Sex: Male
  Weight: 70.3075 kg

DRUGS (1)
  1. LEVETIRACETAM [Suspect]
     Indication: PARTIAL SEIZURES
     Dosage: 500MG BID PO
     Route: 048
     Dates: start: 20100815, end: 20100822

REACTIONS (7)
  - DEPRESSION [None]
  - DYSGEUSIA [None]
  - IRRITABILITY [None]
  - LETHARGY [None]
  - PSYCHIATRIC SYMPTOM [None]
  - SOMNOLENCE [None]
  - THERAPEUTIC RESPONSE UNEXPECTED [None]
